FAERS Safety Report 5190545-1 (Version None)
Quarter: 2006Q4

REPORT INFORMATION
  Report Type: 
  Country: None (occurrence: None)
  Receive Date: 20061222
  Receipt Date: 20060804
  Transmission Date: 20070319
  Serious: Yes (Hospitalization, Other)
  Sender: FDA-Public Use
  Company Number: US-ELI_LILLY_AND_COMPANY-US200608003805

PATIENT
  Age: 58 Year
  Sex: Male
  Weight: 126.98 kg

DRUGS (7)
  1. ZYPREXA [Suspect]
     Dosage: 10 MG, UNK
     Dates: start: 20000101
  2. BUPROPION HCL [Concomitant]
     Dates: start: 20050101
  3. FLUOXETINE                              /N/A/ [Concomitant]
     Dates: start: 19920101
  4. MIRTAZAPINE [Concomitant]
     Dates: start: 20000101
  5. METOPROLOL SUCCINATE [Concomitant]
     Dates: start: 20010101
  6. PROPRANOLOL [Concomitant]
     Dates: start: 20010101
  7. THIAZIDE DERIVATIVES [Concomitant]
     Dates: start: 20000101

REACTIONS (7)
  - ANHEDONIA [None]
  - CARDIAC OPERATION [None]
  - DIABETES MELLITUS [None]
  - DIABETIC COMA [None]
  - DIABETIC KETOACIDOSIS [None]
  - HYPERGLYCAEMIA [None]
  - PANCREATITIS [None]
